FAERS Safety Report 25503073 (Version 2)
Quarter: 2025Q3

REPORT INFORMATION
  Report Type: Spontaneous
  Country: MX (occurrence: MX)
  Receive Date: 20250702
  Receipt Date: 20250811
  Transmission Date: 20251021
  Serious: Yes (Other)
  Sender: ASTELLAS
  Company Number: MX-ASTELLAS-2025-AER-034114

PATIENT
  Age: 50 Year
  Sex: Female

DRUGS (2)
  1. VEOZAH [Interacting]
     Active Substance: FEZOLINETANT
     Indication: Menopausal symptoms
     Dosage: DURATION: 1 MONTH
     Route: 048
     Dates: start: 20250508, end: 20250619
  2. KISQALI [Interacting]
     Active Substance: RIBOCICLIB SUCCINATE
     Indication: Breast cancer
     Dosage: THREE MONTHS
     Route: 048
     Dates: start: 202504, end: 20250620

REACTIONS (2)
  - Drug-induced liver injury [Recovering/Resolving]
  - Drug interaction [Unknown]

NARRATIVE: CASE EVENT DATE: 20250101
